FAERS Safety Report 5873744-2 (Version None)
Quarter: 2008Q3

REPORT INFORMATION
  Report Type: 
  Country: None (occurrence: None)
  Receive Date: 20080903
  Receipt Date: 20080903
  Transmission Date: 20090109
  Serious: Yes (Hospitalization)
  Sender: FDA-Public Use
  Company Number: None

PATIENT
  Age: 35 Year
  Sex: Male

DRUGS (2)
  1. NEFAZODONE HCL [Suspect]
     Indication: DEPRESSION
     Dosage: 300 MG HS PO
     Route: 048
     Dates: start: 20080811, end: 20080828
  2. NEFAZODONE HCL [Suspect]
     Indication: DYSTHYMIC DISORDER
     Dosage: 300 MG HS PO
     Route: 048
     Dates: start: 20080811, end: 20080828

REACTIONS (1)
  - HEPATIC ENZYME INCREASED [None]
